FAERS Safety Report 24633073 (Version 1)
Quarter: 2024Q4

REPORT INFORMATION
  Report Type: Spontaneous
  Country: US (occurrence: US)
  Receive Date: 20241118
  Receipt Date: 20241118
  Transmission Date: 20250115
  Serious: No
  Sender: BAUSCH AND LOMB
  Company Number: US-BAUSCHBL-2024BNL037186

PATIENT
  Age: 76 Year
  Sex: Male
  Weight: 70.824 kg

DRUGS (3)
  1. XIIDRA [Suspect]
     Active Substance: LIFITEGRAST
     Indication: Dry eye
     Route: 047
     Dates: start: 20241106
  2. RESTASIS [Concomitant]
     Active Substance: CYCLOSPORINE
     Indication: Product used for unknown indication
  3. IVIZIA [Concomitant]
     Active Substance: POVIDONE
     Indication: Product used for unknown indication

REACTIONS (2)
  - Ill-defined disorder [Recovered/Resolved]
  - Vision blurred [Unknown]
